FAERS Safety Report 5790332-7 (Version None)
Quarter: 2008Q2

REPORT INFORMATION
  Report Type: 
  Country: None (occurrence: None)
  Receive Date: 20080626
  Receipt Date: 20080317
  Transmission Date: 20081010
  Serious: No
  Sender: FDA-Public Use
  Company Number: A0708667A

PATIENT

DRUGS (1)
  1. ALLI [Suspect]
     Dates: start: 20080105

REACTIONS (5)
  - FUNGAL INFECTION [None]
  - VAGINAL DISCHARGE [None]
  - VAGINAL ODOUR [None]
  - VULVOVAGINAL BURNING SENSATION [None]
  - VULVOVAGINAL DISCOMFORT [None]
